FAERS Safety Report 21983611 (Version 5)
Quarter: 2023Q2

REPORT INFORMATION
  Report Type: Report from Study
  Country: CN (occurrence: CN)
  Receive Date: 20230213
  Receipt Date: 20230616
  Transmission Date: 20230722
  Serious: Yes (Hospitalization)
  Sender: FDA-Public Use
  Company Number: CN-TAKEDA-2023TUS013585

PATIENT
  Age: 20 Year
  Sex: Male
  Weight: 48 kg

DRUGS (6)
  1. VEDOLIZUMAB [Suspect]
     Active Substance: VEDOLIZUMAB
     Indication: Colitis ulcerative
     Dosage: 300 MILLIGRAM
     Route: 042
     Dates: start: 20221021
  2. PREDNISONE ACETATE [Concomitant]
     Active Substance: PREDNISONE ACETATE
     Indication: Inflammatory bowel disease
     Dosage: 5 MILLIGRAM, QD
     Route: 048
     Dates: start: 20221104, end: 202302
  3. Live combined bacillus subtilis and enterococcus faecium [Concomitant]
     Indication: Dysbiosis
     Dosage: 250 MICROGRAM, QD
     Route: 048
     Dates: start: 20230203, end: 20230203
  4. Live combined bacillus subtilis and enterococcus faecium [Concomitant]
     Dosage: 500 MILLIGRAM, TID
     Route: 048
     Dates: start: 20230204, end: 20230210
  5. Live combined bacillus subtilis and enterococcus faecium [Concomitant]
     Dosage: 500 MILLIGRAM, TID
     Route: 048
     Dates: start: 20230529, end: 20230607
  6. MESALAMINE [Concomitant]
     Active Substance: MESALAMINE
     Indication: Inflammatory bowel disease
     Dosage: 4 GRAM, QD
     Dates: start: 20230607

REACTIONS (1)
  - Gastrointestinal infection [Recovered/Resolved]

NARRATIVE: CASE EVENT DATE: 20230203
